FAERS Safety Report 25173797 (Version 1)
Quarter: 2025Q2

REPORT INFORMATION
  Report Type: Spontaneous
  Country: US (occurrence: US)
  Receive Date: 20250408
  Receipt Date: 20250408
  Transmission Date: 20250716
  Serious: Yes (Hospitalization, Other)
  Sender: BAXTER
  Company Number: US-BAXTER-2025BAX013517

PATIENT
  Age: 23 Year
  Sex: Female

DRUGS (1)
  1. ACETAMINOPHEN [Suspect]
     Active Substance: ACETAMINOPHEN
     Indication: Abdominal pain
     Route: 065

REACTIONS (4)
  - Toxicity to various agents [Recovering/Resolving]
  - Overdose [Unknown]
  - Acute hepatic failure [Recovering/Resolving]
  - Exposure during pregnancy [Unknown]
